FAERS Safety Report 4837371-8 (Version None)
Quarter: 2005Q4

REPORT INFORMATION
  Report Type: 
  Country: None (occurrence: None)
  Receive Date: 20051122
  Receipt Date: 20051109
  Transmission Date: 20060501
  Serious: Yes (Death)
  Sender: FDA-Public Use
  Company Number: 2005153878

PATIENT
  Sex: Male

DRUGS (3)
  1. VIAGRA [Suspect]
     Indication: ILL-DEFINED DISORDER
     Dates: end: 20030301
  2. BIPERIDEN (BIPERIDEN) [Concomitant]
  3. NISISCO (HYDROCHLOROTHIAZIDE, VALSARTAN) [Concomitant]

REACTIONS (1)
  - DEATH [None]
